FAERS Safety Report 24410573 (Version 1)
Quarter: 2024Q4

REPORT INFORMATION
  Report Type: Spontaneous
  Country: US (occurrence: US)
  Receive Date: 20241008
  Receipt Date: 20241008
  Transmission Date: 20250115
  Serious: Yes (Hospitalization)
  Sender: ACCORD
  Company Number: US-MLMSERVICE-20240923-PI201792-00101-1

PATIENT
  Age: 76 Year
  Sex: Male

DRUGS (3)
  1. CISPLATIN [Suspect]
     Active Substance: CISPLATIN
     Indication: Bladder transitional cell carcinoma
     Dosage: 4 CYCLES OF CHEMOTHERAPY WITH CISPLATIN AND GEMCITABINE OVER A PERIOD OF 12 WEEKS.
  2. GEMCITABINE [Suspect]
     Active Substance: GEMCITABINE
     Indication: Bladder transitional cell carcinoma
     Dosage: 4 CYCLES OF CHEMOTHERAPY WITH CISPLATIN AND GEMCITABINE OVER A PERIOD OF 12 WEEKS.
  3. PEGFILGRASTIM [Concomitant]
     Active Substance: PEGFILGRASTIM

REACTIONS (6)
  - Neutropenic sepsis [Recovered/Resolved]
  - Hypotension [Recovered/Resolved]
  - Oesophagitis [Recovered/Resolved]
  - Oesophageal haemorrhage [Recovered/Resolved]
  - Necrotising oesophagitis [Recovered/Resolved]
  - Pancytopenia [Recovered/Resolved]
